FAERS Safety Report 9845172 (Version 1)
Quarter: 2014Q1

REPORT INFORMATION
  Report Type: Spontaneous
  Country: CH (occurrence: CH)
  Receive Date: 20140127
  Receipt Date: 20140127
  Transmission Date: 20141002
  Serious: Yes (Life-Threatening, Hospitalization)
  Sender: FDA-Public Use
  Company Number: CH-MYLANLABS-2014S1001207

PATIENT
  Age: 31 Year
  Sex: Male
  Weight: 67 kg

DRUGS (8)
  1. METHADONE [Suspect]
     Indication: DRUG WITHDRAWAL MAINTENANCE THERAPY
     Dosage: 50-60MG DAILY
     Route: 048
  2. ESCITALOPRAM [Interacting]
     Route: 065
  3. ONDANSETRON [Suspect]
     Indication: ABDOMINAL PAIN
     Route: 042
  4. ESOMEPRAZOLE [Concomitant]
     Indication: ABDOMINAL PAIN
     Route: 042
  5. SCOPOLAMINE BUTYLBROMIDE [Concomitant]
     Indication: ABDOMINAL PAIN
     Route: 042
  6. DIPYRONE [Concomitant]
     Indication: ABDOMINAL PAIN
     Route: 042
  7. PARACETAMOL [Concomitant]
     Indication: ABDOMINAL PAIN
     Route: 042
  8. PETHIDINE [Concomitant]
     Indication: ABDOMINAL PAIN
     Route: 042

REACTIONS (10)
  - Electrocardiogram QT prolonged [Recovered/Resolved]
  - Torsade de pointes [Recovered/Resolved]
  - Drug interaction [Recovered/Resolved]
  - Abdominal pain [Recovered/Resolved]
  - Drug withdrawal syndrome [Recovered/Resolved]
  - Drug administration error [Recovered/Resolved]
  - Stress cardiomyopathy [Recovered/Resolved]
  - Hypokalaemia [Recovered/Resolved]
  - Hypomagnesaemia [Recovered/Resolved]
  - Dyspepsia [Recovered/Resolved]
